FAERS Safety Report 18902453 (Version 2)
Quarter: 2021Q1

REPORT INFORMATION
  Report Type: Report from Study
  Country: None (occurrence: CA)
  Receive Date: 20210216
  Receipt Date: 20210301
  Transmission Date: 20210420
  Serious: Yes (Hospitalization, Disabling, Other)
  Sender: FDA-Public Use
  Company Number: CA-ASCEND THERAPEUTICS US, LLC-2106851

PATIENT
  Age: 18 Year
  Sex: Female

DRUGS (21)
  1. HYDROCORTISONE (HYDROCORTISONE), UNK [Suspect]
     Active Substance: HYDROCORTISONE
     Route: 042
  2. HYDROCORTISONE (HYDROCORTISONE), UNK [Suspect]
     Active Substance: HYDROCORTISONE
     Route: 042
  3. TRAMETINIB (TRAMETINIB) [Suspect]
     Active Substance: TRAMETINIB
     Route: 048
  4. POLYETHYLENE GLYCOL (MACROGOL), UNK [Concomitant]
     Route: 065
  5. TRAMETINIB (TRAMETINIB) [Suspect]
     Active Substance: TRAMETINIB
     Route: 048
  6. ESTRADIOL. [Suspect]
     Active Substance: ESTRADIOL
     Route: 065
  7. DESOXIMETASONE. [Concomitant]
     Active Substance: DESOXIMETASONE
     Route: 065
  8. LEVONORGESTREL AND ETHINYL ESTRADIOL [Concomitant]
     Active Substance: ETHINYL ESTRADIOL\LEVONORGESTREL
     Route: 065
  9. LAMOTRIGINE. [Suspect]
     Active Substance: LAMOTRIGINE
     Route: 065
  10. TRAMETINIB (TRAMETINIB) [Suspect]
     Active Substance: TRAMETINIB
     Route: 048
  11. CLOBAZAM. [Concomitant]
     Active Substance: CLOBAZAM
     Route: 065
  12. LEVOTHYROXINE SODIUM. [Concomitant]
     Active Substance: LEVOTHYROXINE SODIUM
     Route: 065
  13. TRAMETINIB (TRAMETINIB) [Suspect]
     Active Substance: TRAMETINIB
     Route: 048
  14. ESTROGEL [Suspect]
     Active Substance: ESTRADIOL
     Indication: HYPOPITUITARISM
     Route: 065
  15. ESTROGEL [Suspect]
     Active Substance: ESTRADIOL
  16. DOXYCYCLINE. [Concomitant]
     Active Substance: DOXYCYCLINE
     Route: 065
  17. HYDROCORTISONE (HYDROCORTISONE), UNK [Suspect]
     Active Substance: HYDROCORTISONE
     Route: 042
  18. DESMOPRESSIN (DESMOPRESSIN), UNK [Concomitant]
     Route: 065
  19. HYDRALAZINE [Concomitant]
     Active Substance: HYDRALAZINE HYDROCHLORIDE
     Route: 065
  20. HYDROCORTISONE (HYDROCORTISONE), UNK [Suspect]
     Active Substance: HYDROCORTISONE
     Route: 042
  21. ONDANSETRON [Concomitant]
     Active Substance: ONDANSETRON
     Route: 065

REACTIONS (6)
  - Urinary tract infection [Recovered/Resolved]
  - Anaemia [Recovered/Resolved]
  - Intentional product misuse [Recovered/Resolved]
  - Lipase increased [Recovered/Resolved]
  - C-reactive protein increased [Recovered/Resolved]
  - Pancreatitis [Recovered/Resolved]
